FAERS Safety Report 8480930-4 (Version None)
Quarter: 2012Q2

REPORT INFORMATION
  Report Type: 
  Country: None (occurrence: None)
  Receive Date: 20120622
  Receipt Date: 20120613
  Transmission Date: 20120825
  Serious: No
  Sender: FDA-Public Use
  Company Number: B0804982A

PATIENT
  Age: 42 Year
  Sex: Female
  Weight: 54.8852 kg

DRUGS (3)
  1. FONDAPARINUX SODIUM [Suspect]
     Indication: THROMBOSIS PROPHYLAXIS
     Dosage: 2.5 MG/ PER DAY/' SUBCUTANEOUS
     Route: 058
  2. ACETAMINOPHEN [Concomitant]
  3. ORAL CONTRACEPTIVE [Concomitant]

REACTIONS (3)
  - HAEMATOMA [None]
  - OVERDOSE [None]
  - LABORATORY TEST ABNORMAL [None]
